FAERS Safety Report 18527362 (Version 1)
Quarter: 2020Q4

REPORT INFORMATION
  Report Type: Spontaneous
  Country: FR (occurrence: FR)
  Receive Date: 20201120
  Receipt Date: 20201120
  Transmission Date: 20210114
  Serious: Yes (Death)
  Sender: FDA-Public Use
  Company Number: FR-PFIZER INC-2020454258

PATIENT
  Age: 59 Year
  Sex: Female

DRUGS (5)
  1. PHOLCODINE [Suspect]
     Active Substance: PHOLCODINE
     Dosage: UNK
  2. GABAPENTIN. [Suspect]
     Active Substance: GABAPENTIN
     Dosage: UNK
  3. HYDROXYZINE HYDROCHLORIDE. [Suspect]
     Active Substance: HYDROXYZINE HYDROCHLORIDE
     Dosage: UNK
  4. CODEINE [Suspect]
     Active Substance: CODEINE
     Dosage: UNK
  5. ZOPICLONE [Suspect]
     Active Substance: ZOPICLONE
     Dosage: UNK

REACTIONS (1)
  - Death [Fatal]
